FAERS Safety Report 19296231 (Version 1)
Quarter: 2021Q2

REPORT INFORMATION
  Report Type: Spontaneous
  Country: DE (occurrence: DE)
  Receive Date: 20210524
  Receipt Date: 20210524
  Transmission Date: 20210717
  Serious: Yes (Other)
  Sender: FDA-Public Use
  Company Number: DE-TEVA-2021-DE-1914038

PATIENT
  Age: 46 Year
  Sex: Female
  Weight: 55 kg

DRUGS (2)
  1. DICLOFENAC?RATIOPHARM 50 MG RETARD [Suspect]
     Active Substance: DICLOFENAC
     Indication: BACK PAIN
     Dosage: 1?1?1
     Route: 065
     Dates: start: 20210324, end: 20210325
  2. TOLPERISONHYDROCHLORID AL 50 MG FILMTABLETTEN [Interacting]
     Active Substance: TOLPERISONE HYDROCHLORIDE
     Indication: BACK PAIN
     Dosage: 100 MILLIGRAM DAILY; 0?0?2; UNIQUE
     Dates: start: 20210324

REACTIONS (8)
  - Oedema mucosal [Recovered/Resolved]
  - Ear swelling [Recovered/Resolved]
  - Palpitations [Recovered/Resolved]
  - Pruritus [Recovered/Resolved]
  - Throat tightness [Recovered/Resolved]
  - Swollen tongue [Recovered/Resolved]
  - Drug interaction [Unknown]
  - Hypersensitivity [Recovered/Resolved]

NARRATIVE: CASE EVENT DATE: 202103
